FAERS Safety Report 22273040 (Version 1)
Quarter: 2023Q2

REPORT INFORMATION
  Report Type: Spontaneous
  Country: GB (occurrence: GB)
  Receive Date: 20230502
  Receipt Date: 20230502
  Transmission Date: 20230721
  Serious: Yes (Other)
  Sender: FDA-Public Use
  Company Number: GB-SANOFI-01585902

PATIENT
  Sex: Male

DRUGS (1)
  1. TAXOTERE [Suspect]
     Active Substance: DOCETAXEL
     Dosage: UNK

REACTIONS (1)
  - Prostate cancer stage III [Unknown]
